FAERS Safety Report 23624933 (Version 3)
Quarter: 2024Q2

REPORT INFORMATION
  Report Type: Spontaneous
  Country: FR (occurrence: FR)
  Receive Date: 20240313
  Receipt Date: 20240424
  Transmission Date: 20240716
  Serious: Yes (Other)
  Sender: FDA-Public Use
  Company Number: FR-SHIRE-FR201724432

PATIENT
  Age: 13 Year
  Sex: Male

DRUGS (28)
  1. MERCAPTOPURINE [Suspect]
     Active Substance: MERCAPTOPURINE
     Indication: Acute lymphocytic leukaemia
     Dosage: UNK
     Route: 065
  2. MERCAPTOPURINE [Suspect]
     Active Substance: MERCAPTOPURINE
     Dosage: UNK
     Route: 065
  3. MERCAPTOPURINE [Suspect]
     Active Substance: MERCAPTOPURINE
     Dosage: UNK
     Route: 065
  4. MERCAPTOPURINE [Suspect]
     Active Substance: MERCAPTOPURINE
     Dosage: UNK
     Route: 065
  5. ADRIAMYCIN [Suspect]
     Active Substance: DOXORUBICIN HYDROCHLORIDE
     Indication: Acute lymphocytic leukaemia
     Dosage: 42 MG, UNK
     Route: 042
     Dates: start: 20170530
  6. CYCLOPHOSPHAMIDE [Suspect]
     Active Substance: CYCLOPHOSPHAMIDE
     Indication: Acute lymphocytic leukaemia
     Dosage: 1500 MG
     Route: 042
     Dates: start: 20170113, end: 20170209
  7. CYCLOPHOSPHAMIDE [Suspect]
     Active Substance: CYCLOPHOSPHAMIDE
     Dosage: 1640 MG
     Route: 042
     Dates: start: 20170621, end: 20170627
  8. CYTARABINE [Suspect]
     Active Substance: CYTARABINE
     Dosage: 110 MG
     Route: 042
     Dates: start: 20170115
  9. CYTARABINE [Suspect]
     Active Substance: CYTARABINE
     Indication: Acute lymphocytic leukaemia
     Dosage: 30 MG
     Route: 037
     Dates: start: 20161202
  10. DEXAMETHASONE [Suspect]
     Active Substance: DEXAMETHASONE
     Dosage: 16.5 MG, UNK
     Route: 048
     Dates: start: 20170530, end: 20170613
  11. DEXAMETHASONE [Suspect]
     Active Substance: DEXAMETHASONE
     Indication: Acute lymphocytic leukaemia
     Dosage: 96 MG
     Route: 048
     Dates: start: 20170317, end: 20170322
  12. DOXORUBICIN HYDROCHLORIDE [Suspect]
     Active Substance: DOXORUBICIN HYDROCHLORIDE
     Indication: Acute lymphocytic leukaemia
     Dosage: 42 MG
     Route: 042
     Dates: start: 20170530, end: 20170613
  13. DAUNORUBICIN [Suspect]
     Active Substance: DAUNORUBICIN
     Indication: Acute lymphocytic leukaemia
     Dosage: 65 MG
     Route: 042
     Dates: start: 20161130, end: 20161222
  14. DEXAMETHASONE SODIUM METASULFOBENZOATE [Suspect]
     Active Substance: DEXAMETHASONE SODIUM METASULFOBENZOATE
     Indication: Acute lymphocytic leukaemia
     Dosage: 16.5 MG
     Route: 048
     Dates: start: 20170530, end: 20170613
  15. DEXAMETHASONE SODIUM METASULFOBENZOATE [Suspect]
     Active Substance: DEXAMETHASONE SODIUM METASULFOBENZOATE
     Dosage: 96 MG
     Route: 048
     Dates: start: 20170317, end: 20170322
  16. HYDROCORTISONE [Suspect]
     Active Substance: HYDROCORTISONE
     Indication: Acute lymphocytic leukaemia
     Dosage: 15 MG
     Route: 037
     Dates: start: 20161202
  17. METHOTREXATE [Suspect]
     Active Substance: METHOTREXATE
     Indication: Acute lymphocytic leukaemia
     Dosage: 15 MG
     Route: 037
     Dates: start: 20161129
  18. METHOTREXATE [Suspect]
     Active Substance: METHOTREXATE
     Dosage: 15 MG
     Route: 037
     Dates: start: 20170602, end: 20170629
  19. METHOTREXATE [Suspect]
     Active Substance: METHOTREXATE
     Dosage: 8000 MG, QD
     Route: 042
     Dates: start: 20170417
  20. PREDNISONE [Suspect]
     Active Substance: PREDNISONE
     Indication: Acute lymphocytic leukaemia
     Dosage: 100 MG
     Route: 048
     Dates: start: 20161129, end: 20161228
  21. PEGASPARGASE [Suspect]
     Active Substance: PEGASPARGASE
     Indication: Acute lymphocytic leukaemia
     Dosage: 4200 IU, UNK
     Route: 042
     Dates: start: 20161205
  22. PREDNISOLONE [Suspect]
     Active Substance: PREDNISOLONE
     Indication: Acute lymphocytic leukaemia
     Dosage: 15.000MG QD
     Route: 037
     Dates: start: 20161202
  23. PREDNISOLONE [Suspect]
     Active Substance: PREDNISOLONE
     Dosage: UNK
     Route: 037
     Dates: start: 20170602, end: 20170602
  24. PREDNISOLONE ACETATE [Suspect]
     Active Substance: PREDNISOLONE ACETATE
     Indication: Acute lymphocytic leukaemia
     Dosage: QD
     Route: 037
     Dates: start: 20170602, end: 20170602
  25. THIOGUANINE [Suspect]
     Active Substance: THIOGUANINE
     Indication: Acute lymphocytic leukaemia
     Dosage: UNK
     Route: 048
     Dates: start: 20170627, end: 20170707
  26. VINCRISTINE SULFATE [Suspect]
     Active Substance: VINCRISTINE SULFATE
     Dosage: 2 MG, QD TOTAL DOSE: 470
     Route: 040
     Dates: start: 20161130, end: 20170722
  27. VINCRISTINE SULFATE [Suspect]
     Active Substance: VINCRISTINE SULFATE
     Indication: Acute lymphocytic leukaemia
     Dosage: 2 MG, QD
     Route: 042
     Dates: start: 20161130, end: 20170722
  28. ETOPOSIDE [Suspect]
     Active Substance: ETOPOSIDE
     Indication: Acute lymphocytic leukaemia
     Dosage: 240 MG,QDTOTAL DOSE: 720
     Route: 042
     Dates: start: 20170319, end: 20170321

REACTIONS (5)
  - Hypertriglyceridaemia [Recovered/Resolved]
  - Hypertriglyceridaemia [Recovered/Resolved]
  - Product use in unapproved indication [Unknown]
  - Off label use [Unknown]
  - Off label use [Unknown]

NARRATIVE: CASE EVENT DATE: 20170807
